FAERS Safety Report 8941646 (Version 1)
Quarter: 2012Q4

REPORT INFORMATION
  Report Type: 
  Country: US (occurrence: US)
  Receive Date: 20121203
  Receipt Date: 20121203
  Transmission Date: 20130627
  Serious: No
  Sender: FDA-Public Use
  Company Number: US-PFIZER INC-2012297958

PATIENT
  Age: 58 Year
  Sex: Male
  Weight: 72 kg

DRUGS (5)
  1. SONATA [Suspect]
     Indication: INSOMNIA NOS
     Dosage: 5 mg, 1x/day
     Dates: start: 201211, end: 201211
  2. SONATA [Suspect]
     Dosage: 10 mg, 1x/day
     Dates: start: 201211
  3. LISINOPRIL [Concomitant]
     Dosage: UNK
  4. AMLODIPINE [Concomitant]
     Dosage: UNK
  5. ATENOLOL [Concomitant]
     Dosage: UNK

REACTIONS (4)
  - Drug ineffective [Not Recovered/Not Resolved]
  - Rapid eye movements sleep abnormal [Not Recovered/Not Resolved]
  - Loss of dreaming [Not Recovered/Not Resolved]
  - Fatigue [Not Recovered/Not Resolved]
